FAERS Safety Report 10150133 (Version 1)
Quarter: 2014Q2

REPORT INFORMATION
  Report Type: Spontaneous
  Country: US (occurrence: US)
  Receive Date: 20140502
  Receipt Date: 20140502
  Transmission Date: 20141212
  Serious: Yes (Other)
  Sender: FDA-Public Use
  Company Number: US-GLAXOSMITHKLINE-A1070625A

PATIENT
  Age: 54 Year
  Sex: Male

DRUGS (2)
  1. LOVAZA [Suspect]
     Indication: BLOOD TRIGLYCERIDES
     Dosage: 2CAP TWICE PER DAY
     Route: 048
  2. UNSPECIFIED MEDICATIONS [Concomitant]

REACTIONS (1)
  - Blindness [Unknown]
